FAERS Safety Report 4648299-0 (Version None)
Quarter: 2005Q2

REPORT INFORMATION
  Report Type: 
  Country: None (occurrence: None)
  Receive Date: 20050331
  Receipt Date: 20041228
  Transmission Date: 20051028
  Serious: No
  Sender: FDA-Public Use
  Company Number: 04P-163-0284788-00

PATIENT
  Age: 82 Year
  Sex: Female
  Weight: 52.6173 kg

DRUGS (7)
  1. HUMIRA [Suspect]
     Indication: RHEUMATOID ARTHRITIS
     Dosage: 40 MG, 1 IN 2 WK, SUBCUTANEOUS
     Route: 058
     Dates: start: 20041215
  2. AZATHIOPRINE [Concomitant]
  3. FOLIC ACID [Concomitant]
  4. ASPIRIN [Concomitant]
  5. LEXAPRO [Concomitant]
  6. RISEDRONATE SODIUM [Concomitant]
  7. CRESTOR [Concomitant]

REACTIONS (1)
  - HERPES SIMPLEX [None]
